FAERS Safety Report 5881832-X (Version None)
Quarter: 2008Q3

REPORT INFORMATION
  Report Type: 
  Country: None (occurrence: None)
  Receive Date: 20080912
  Receipt Date: 20080714
  Transmission Date: 20090109
  Serious: No
  Sender: FDA-Public Use
  Company Number: US-ABBOTT-08P-163-0462710-00

PATIENT
  Sex: Male

DRUGS (3)
  1. HUMIRA [Suspect]
     Indication: PSORIATIC ARTHROPATHY
     Route: 058
     Dates: start: 20080201, end: 20080601
  2. HUMIRA [Suspect]
     Route: 058
     Dates: start: 20070101, end: 20080107
  3. HUMIRA [Suspect]
     Route: 058
     Dates: start: 20080721

REACTIONS (2)
  - ARTHRALGIA [None]
  - FATIGUE [None]
